FAERS Safety Report 5177910-3 (Version None)
Quarter: 2006Q4

REPORT INFORMATION
  Report Type: 
  Country: None (occurrence: None)
  Receive Date: 20061218
  Receipt Date: 20060726
  Transmission Date: 20070319
  Serious: No
  Sender: FDA-Public Use
  Company Number: US-AMGEN-KDL187960

PATIENT
  Sex: Female

DRUGS (2)
  1. ENBREL [Suspect]
     Indication: PSORIATIC ARTHROPATHY
     Route: 058
     Dates: start: 20050902
  2. ENBREL [Suspect]
     Indication: PSORIASIS

REACTIONS (6)
  - BLINDNESS [None]
  - CATARACT [None]
  - DRUG INEFFECTIVE [None]
  - DYSURIA [None]
  - EYE DISORDER [None]
  - PAIN [None]
